FAERS Safety Report 11524584 (Version 2)
Quarter: 2015Q4

REPORT INFORMATION
  Report Type: Spontaneous
  Country: JP (occurrence: JP)
  Receive Date: 20150918
  Receipt Date: 20151026
  Transmission Date: 20160304
  Serious: Yes (Hospitalization)
  Sender: FDA-Public Use
  Company Number: JP-PFIZER INC-2015313989

PATIENT
  Age: 31 Year
  Sex: Male

DRUGS (2)
  1. YODEL [Concomitant]
     Active Substance: SENNA LEAF
     Dosage: 1 DF, AS NEEDED
     Route: 048
  2. CHAMPIX [Suspect]
     Active Substance: VARENICLINE TARTRATE
     Indication: SMOKING CESSATION THERAPY
     Dosage: 1 MG, 2X/DAY
     Route: 048
     Dates: start: 20150825, end: 20150902

REACTIONS (2)
  - Nasopharyngitis [Recovered/Resolved]
  - Pancreatitis [Recovering/Resolving]
